FAERS Safety Report 7518590-9 (Version None)
Quarter: 2011Q2

REPORT INFORMATION
  Report Type: 
  Country: None (occurrence: None)
  Receive Date: 20110602
  Receipt Date: 20110523
  Transmission Date: 20111010
  Serious: Yes (Death, Other)
  Sender: FDA-Public Use
  Company Number: AU-PFIZER INC-2011113104

PATIENT
  Age: 26 Year
  Sex: Female

DRUGS (8)
  1. DIAZEPAM [Interacting]
     Dosage: UNK
  2. METHYLENEDIOXYMETHAMPHETAMINE [Interacting]
     Dosage: UNK
  3. METHAMPHETAMINE HYDROCHLORIDE [Interacting]
  4. AMPHETAMINES [Interacting]
     Dosage: UNK
  5. FLUVOXAMINE MALEATE [Interacting]
  6. OLANZAPINE [Interacting]
     Dosage: UNK
  7. IBUPROFEN [Suspect]
     Dosage: UNK
  8. NORDAZEPAM [Interacting]

REACTIONS (2)
  - DRUG INTERACTION [None]
  - TOXICITY TO VARIOUS AGENTS [None]
